FAERS Safety Report 9182566 (Version 2)
Quarter: 2013Q2

REPORT INFORMATION
  Report Type: Spontaneous
  Country: AR (occurrence: AR)
  Receive Date: 20130322
  Receipt Date: 20130409
  Transmission Date: 20140414
  Serious: Yes (Hospitalization)
  Sender: FDA-Public Use
  Company Number: PHHY2013AR028186

PATIENT
  Sex: Male

DRUGS (3)
  1. GALVUS [Suspect]
     Indication: DIABETES MELLITUS
     Dosage: 1 DF (50MG), UNK
     Route: 048
  2. DIOVAN [Suspect]
     Indication: HYPERTENSION
     Dosage: 1 DF(320MG), PER DAY
     Route: 048
  3. EXELON PATCH [Suspect]
     Indication: MEMORY IMPAIRMENT
     Dosage: 1 DF (9.5MG), PER DAY
     Route: 062

REACTIONS (3)
  - Pleural effusion [Recovering/Resolving]
  - Fatigue [Recovering/Resolving]
  - Hypertension [Recovering/Resolving]
